FAERS Safety Report 4603231-0 (Version None)
Quarter: 2005Q1

REPORT INFORMATION
  Report Type: 
  Country: None (occurrence: None)
  Receive Date: 20050308
  Receipt Date: 20050224
  Transmission Date: 20050727
  Serious: Yes (Hospitalization, Other)
  Sender: FDA-Public Use
  Company Number: 2004119689

PATIENT
  Age: 63 Year
  Sex: Male

DRUGS (7)
  1. CELEBREX [Suspect]
     Indication: OSTEOARTHRITIS
     Dosage: (200 MG), ORAL
     Route: 048
     Dates: start: 20020130, end: 20021220
  2. BEXTRA [Suspect]
     Indication: ARTHRITIS
     Dosage: (20 MG), ORAL
     Route: 048
     Dates: start: 20030813
  3. ALLOPURINOL [Concomitant]
  4. TOLPERISONE (TOLPERISONE) [Concomitant]
  5. BUPIVACAINE [Concomitant]
  6. SUPERTENDIN (CYANOCOBALAMIN, DEXAMETHASONE, DIPHENHYDRAMINE HYDROCHLOR [Concomitant]
  7. CANDESARTAN CILEXETIL [Concomitant]

REACTIONS (15)
  - ABDOMINAL PAIN UPPER [None]
  - ARRHYTHMIA [None]
  - ARTHRITIS [None]
  - ATRIAL FIBRILLATION [None]
  - CARPAL TUNNEL SYNDROME [None]
  - DRUG INTOLERANCE [None]
  - GASTRIC ULCER [None]
  - GASTRIC ULCER HAEMORRHAGE [None]
  - HELICOBACTER PYLORI IDENTIFICATION TEST POSITIVE [None]
  - HYPERTENSION [None]
  - MELAENA [None]
  - MUSCULOSKELETAL DISORDER [None]
  - OSTEOARTHRITIS [None]
  - TENDON DISORDER [None]
  - VENTRICULAR ARRHYTHMIA [None]
